FAERS Safety Report 24265457 (Version 3)
Quarter: 2025Q1

REPORT INFORMATION
  Report Type: Report from Study
  Country: US (occurrence: US)
  Receive Date: 20240829
  Receipt Date: 20250304
  Transmission Date: 20250409
  Serious: No
  Sender: SUNOVION
  Company Number: US-SUMITOMO PHARMA SWITZERLAND GMBH-2024SPA000779

PATIENT

DRUGS (2)
  1. ORGOVYX [Suspect]
     Active Substance: RELUGOLIX
     Indication: Prostate cancer
     Dosage: 120 MG, QD
     Route: 048
     Dates: start: 20250110
  2. NUBEQA [Suspect]
     Active Substance: DAROLUTAMIDE
     Route: 065

REACTIONS (6)
  - Testicular disorder [Unknown]
  - Dry eye [Unknown]
  - Hair disorder [Unknown]
  - Fatigue [Unknown]
  - Hot flush [Unknown]
  - Incorrect dose administered [Unknown]
